FAERS Safety Report 7789036-0 (Version None)
Quarter: 2011Q3

REPORT INFORMATION
  Report Type: 
  Country: None (occurrence: None)
  Receive Date: 20110930
  Receipt Date: 20110921
  Transmission Date: 20111222
  Serious: Yes (Hospitalization)
  Sender: FDA-Public Use
  Company Number: US-JNJFOC-20110906066

PATIENT
  Sex: Male

DRUGS (2)
  1. CHILDREN'S ZYRTEC ALLERGY [Suspect]
     Route: 065
  2. CHILDREN'S ZYRTEC ALLERGY [Suspect]
     Indication: MULTIPLE ALLERGIES
     Route: 065

REACTIONS (2)
  - PYREXIA [None]
  - PRODUCT QUALITY ISSUE [None]
